FAERS Safety Report 19167733 (Version 1)
Quarter: 2021Q2

REPORT INFORMATION
  Report Type: Spontaneous
  Country: US (occurrence: US)
  Receive Date: 20210422
  Receipt Date: 20210422
  Transmission Date: 20210717
  Serious: No
  Sender: FDA-Public Use
  Company Number: US-JNJFOC-20210426971

PATIENT
  Age: 60 Year
  Sex: Female

DRUGS (9)
  1. MOTRIN [Suspect]
     Active Substance: IBUPROFEN
     Indication: LYMPHOEDEMA
     Route: 065
  2. DIFLUCAN [Concomitant]
     Active Substance: FLUCONAZOLE
     Indication: LYMPHOEDEMA
     Route: 065
  3. LIDOCAINE. [Concomitant]
     Active Substance: LIDOCAINE
     Indication: LYMPHOEDEMA
     Route: 065
  4. LIDOCAINE. [Concomitant]
     Active Substance: LIDOCAINE
     Indication: LYMPHADENOPATHY
  5. MOTRIN [Suspect]
     Active Substance: IBUPROFEN
     Indication: PREMEDICATION
  6. COVID?19 VACCINE NOS. [Concomitant]
     Active Substance: COVID-19 VACCINE NOS
     Indication: PRODUCT USED FOR UNKNOWN INDICATION
     Route: 065
  7. ACETAMINOPHEN. [Concomitant]
     Active Substance: ACETAMINOPHEN
     Indication: PREMEDICATION
     Route: 065
  8. DIFLUCAN [Concomitant]
     Active Substance: FLUCONAZOLE
     Indication: LYMPHADENOPATHY
  9. MOTRIN [Suspect]
     Active Substance: IBUPROFEN
     Indication: LYMPHADENOPATHY

REACTIONS (2)
  - Product use in unapproved indication [Unknown]
  - Overdose [Unknown]
